FAERS Safety Report 6040136-5 (Version None)
Quarter: 2009Q1

REPORT INFORMATION
  Report Type: 
  Country: None (occurrence: None)
  Receive Date: 20090116
  Receipt Date: 20071217
  Transmission Date: 20090719
  Serious: No
  Sender: FDA-Public Use
  Company Number: US-BRISTOL-MYERS SQUIBB COMPANY-14020572

PATIENT
  Age: 45 Year
  Sex: Female
  Weight: 73 kg

DRUGS (5)
  1. ABILIFY [Suspect]
     Indication: BIPOLAR II DISORDER
     Route: 048
     Dates: start: 20071212, end: 20071217
  2. ESTRADIOL [Concomitant]
  3. LEXAPRO [Concomitant]
  4. NEURONTIN [Concomitant]
  5. KLONOPIN [Concomitant]

REACTIONS (4)
  - ARTHRALGIA [None]
  - CHEST PAIN [None]
  - PYREXIA [None]
  - SUICIDAL IDEATION [None]
